FAERS Safety Report 8565062 (Version 3)
Quarter: 2012Q4

REPORT INFORMATION
  Report Type: 
  Country: FR (occurrence: FR)
  Receive Date: 20120516
  Receipt Date: 20121011
  Transmission Date: 20130627
  Serious: Yes (Hospitalization, Other)
  Sender: FDA-Public Use
  Company Number: FR-BRISTOL-MYERS SQUIBB COMPANY-16580771

PATIENT
  Age: 85 Year
  Sex: Male
  Weight: 52 kg

DRUGS (6)
  1. COAPROVEL TABS 150MG/12.5MG [Suspect]
     Indication: HYPERTENSION
     Dosage: Aprovel 75mg was introduced on 28Apr11
     Route: 048
     Dates: start: 2010, end: 20110428
  2. GLUCOPHAGE [Suspect]
     Dosage: 1df=1000 units not specified
     Dates: end: 20110427
  3. FLECAINE [Suspect]
     Dosage: product strength is 100
     Dates: end: 20110427
  4. XANAX [Concomitant]
  5. STABLON [Concomitant]
  6. STRUCTUM [Concomitant]
     Dosage: 1df=500 units not specified

REACTIONS (7)
  - Orthostatic hypotension [Recovered/Resolved]
  - Fall [Recovered/Resolved]
  - Loss of consciousness [Recovered/Resolved]
  - Renal failure chronic [Unknown]
  - Acute pulmonary oedema [Unknown]
  - Nephritis [Unknown]
  - Hypoglycaemia [Recovered/Resolved]
